FAERS Safety Report 15420300 (Version 1)
Quarter: 2018Q3

REPORT INFORMATION
  Report Type: Report from Study
  Country: FR (occurrence: FR)
  Receive Date: 20180924
  Receipt Date: 20180924
  Transmission Date: 20181010
  Serious: Yes (Death)
  Sender: FDA-Public Use
  Company Number: FR-PFIZER INC-2018382456

PATIENT
  Age: 41 Year
  Sex: Male

DRUGS (11)
  1. HUMIRA [Suspect]
     Active Substance: ADALIMUMAB
     Indication: PSORIASIS
     Dosage: 80 MG, WEEKLY
     Route: 058
     Dates: start: 20150526, end: 20150602
  2. DAFLON [DIOSMIN;HESPERIDIN] [Concomitant]
     Dosage: UNK
     Dates: start: 20150904, end: 20180829
  3. METHOTREXATE SODIUM. [Suspect]
     Active Substance: METHOTREXATE SODIUM
     Indication: PSORIASIS
     Dosage: 20 MG, WEEKLY
     Route: 058
     Dates: start: 200804, end: 20150413
  4. NO SUBJECT DRUG [Suspect]
     Active Substance: UNSPECIFIED INGREDIENT
     Dosage: NO DOSE GIVEN
  5. HUMIRA [Suspect]
     Active Substance: ADALIMUMAB
     Dosage: 40 MG, EVERY 2 WEEKS
     Route: 058
     Dates: start: 20150602, end: 201511
  6. DEPAKINE CHRONO [Concomitant]
     Active Substance: VALPROATE SODIUM
     Dosage: UNK
     Dates: start: 1995, end: 20180829
  7. ACITRETINE [Suspect]
     Active Substance: ACITRETIN
     Indication: PSORIASIS
     Dosage: 25 MG, 1X/DAY
     Route: 048
     Dates: start: 2003, end: 2003
  8. VALSARTAN. [Concomitant]
     Active Substance: VALSARTAN
     Dosage: UNK
     Dates: start: 201610, end: 20180829
  9. STELARA [Suspect]
     Active Substance: USTEKINUMAB
     Indication: PSORIASIS
     Dosage: 90 MG, EVERY 4 WEEKS
     Route: 058
     Dates: start: 20151216, end: 20160108
  10. STELARA [Suspect]
     Active Substance: USTEKINUMAB
     Dosage: 90 MG, EVERY 12 WEEKS
     Route: 058
     Dates: start: 20160108, end: 20180619
  11. COSENTYX [Suspect]
     Active Substance: SECUKINUMAB
     Indication: PSORIASIS
     Dosage: 300 MG, WEEKLY
     Route: 058
     Dates: start: 20180619, end: 20180829

REACTIONS (1)
  - Death [Fatal]

NARRATIVE: CASE EVENT DATE: 20180829
